FAERS Safety Report 8125718-9 (Version None)
Quarter: 2012Q1

REPORT INFORMATION
  Report Type: 
  Country: None (occurrence: None)
  Receive Date: 20120209
  Receipt Date: 20120126
  Transmission Date: 20120608
  Serious: Yes (Other)
  Sender: FDA-Public Use
  Company Number: CHPA2012US002235

PATIENT
  Age: 56 Year
  Sex: Female

DRUGS (3)
  1. NODOZ [Concomitant]
     Indication: SOMNOLENCE
     Dosage: 1/2 CAPLET, UNK
     Route: 048
  2. EXCEDRIN MIGRAINE CAPLETS [Concomitant]
     Indication: MIGRAINE
     Dosage: 1-2 CAPLETS, UNK
     Route: 048
  3. MAALOX ADV MAXIMUM STRENGTH ANTACID/ANTIGAS [Suspect]
     Indication: ULCER
     Dosage: 1.5 TO 3 TSP, 2-4 TIMES PER DAY
     Route: 048

REACTIONS (5)
  - COELIAC DISEASE [None]
  - OVERDOSE [None]
  - UNDERDOSE [None]
  - HEADACHE [None]
  - OFF LABEL USE [None]
